FAERS Safety Report 4615095-X (Version None)
Quarter: 2005Q1

REPORT INFORMATION
  Report Type: 
  Country: None (occurrence: None)
  Receive Date: 20050322
  Receipt Date: 20050309
  Transmission Date: 20050727
  Serious: Yes (Hospitalization)
  Sender: FDA-Public Use
  Company Number: PHBS2005JP03422

PATIENT
  Age: 78 Year
  Sex: Female

DRUGS (4)
  1. DIOVAN [Suspect]
     Indication: HYPERTENSION
     Route: 048
  2. BAYCARON [Concomitant]
     Indication: HYPERTENSION
     Route: 048
  3. AMLODIN [Concomitant]
     Indication: HYPERTENSION
     Route: 048
  4. DOGMATYL [Concomitant]
     Route: 048

REACTIONS (11)
  - ANOREXIA [None]
  - BLOOD CREATINE PHOSPHOKINASE INCREASED [None]
  - DEPRESSED LEVEL OF CONSCIOUSNESS [None]
  - DIFFICULTY IN WALKING [None]
  - ELECTROLYTE IMBALANCE [None]
  - HYPOKALAEMIA [None]
  - HYPONATRAEMIA [None]
  - HYPOTENSION [None]
  - RHABDOMYOLYSIS [None]
  - URINE SODIUM INCREASED [None]
  - VOMITING [None]
